FAERS Safety Report 13088822 (Version 1)
Quarter: 2016Q4

REPORT INFORMATION
  Report Type: Spontaneous
  Country: US (occurrence: US)
  Receive Date: 20161230
  Receipt Date: 20161230
  Transmission Date: 20170207
  Serious: Yes (Life-Threatening, Disabling)
  Sender: FDA-Public Use
  Company Number: None

PATIENT
  Age: 77 Year
  Sex: Male
  Weight: 105.75 kg

DRUGS (7)
  1. NIACIN. [Concomitant]
     Active Substance: NIACIN
  2. COQ10 [Concomitant]
     Active Substance: UBIDECARENONE
  3. METOPROLOL. [Concomitant]
     Active Substance: METOPROLOL
  4. MAGNESIUM [Concomitant]
     Active Substance: MAGNESIUM
  5. AMIODARONE [Suspect]
     Active Substance: AMIODARONE
     Indication: ARRHYTHMIA
     Dosage: ?          QUANTITY:350 CAPSULE(S);?
     Route: 048
     Dates: start: 20110211, end: 20110915
  6. BABY ASPIRIN [Concomitant]
     Active Substance: ASPIRIN
  7. FISH OIL [Concomitant]
     Active Substance: FISH OIL

REACTIONS (1)
  - Sudden death [None]

NARRATIVE: CASE EVENT DATE: 20120212
